FAERS Safety Report 15082737 (Version 1)
Quarter: 2018Q2

REPORT INFORMATION
  Report Type: Spontaneous
  Country: US (occurrence: US)
  Receive Date: 20180607
  Receipt Date: 20180607
  Transmission Date: 20180711
  Serious: Yes (Hospitalization)
  Sender: FDA-Public Use
  Company Number: None

PATIENT
  Age: 65 Year
  Sex: Female
  Weight: 106.3 kg

DRUGS (2)
  1. CYCLOPHOSPHAMIDE. [Suspect]
     Active Substance: CYCLOPHOSPHAMIDE
     Dates: end: 20180510
  2. DOXORUBICIN HYDROCHLORIDE. [Suspect]
     Active Substance: DOXORUBICIN HYDROCHLORIDE
     Dates: end: 20180510

REACTIONS (13)
  - Pain in extremity [None]
  - Chest discomfort [None]
  - Dyspnoea [None]
  - Embolism [None]
  - Electrocardiogram T wave abnormal [None]
  - Deep vein thrombosis [None]
  - Troponin increased [None]
  - Peripheral swelling [None]
  - Ischaemia [None]
  - Pulmonary embolism [None]
  - Right ventricular enlargement [None]
  - Chest pain [None]
  - Vertigo [None]

NARRATIVE: CASE EVENT DATE: 20180523
